FAERS Safety Report 5725851-2 (Version None)
Quarter: 2008Q2

REPORT INFORMATION
  Report Type: 
  Country: None (occurrence: None)
  Receive Date: 20080430
  Receipt Date: 20080422
  Transmission Date: 20081010
  Serious: Yes (Other)
  Sender: FDA-Public Use
  Company Number: 2008010306

PATIENT
  Age: 40 Year
  Sex: Female
  Weight: 46.7205 kg

DRUGS (1)
  1. ZYRTEC [Suspect]
     Indication: HYPERSENSITIVITY
     Dosage: ONE PILL, ONCE IN 1 D), ORAL
     Route: 048
     Dates: start: 20080421, end: 20080422

REACTIONS (6)
  - FATIGUE [None]
  - HALLUCINATION [None]
  - INFLUENZA LIKE ILLNESS [None]
  - PARAESTHESIA [None]
  - SALIVARY HYPERSECRETION [None]
  - SOMNOLENCE [None]
